FAERS Safety Report 22585838 (Version 1)
Quarter: 2023Q2

REPORT INFORMATION
  Report Type: Report from Study
  Country: CA (occurrence: CA)
  Receive Date: 20230610
  Receipt Date: 20230610
  Transmission Date: 20230721
  Serious: Yes (Death)
  Sender: FDA-Public Use
  Company Number: CA-002147023-NVSC2023CA132272

PATIENT
  Age: 80 Year
  Sex: Male

DRUGS (1)
  1. ELTROMBOPAG OLAMINE [Suspect]
     Active Substance: ELTROMBOPAG OLAMINE
     Indication: Aplastic anaemia
     Dosage: UNK
     Route: 048
     Dates: start: 20220204

REACTIONS (3)
  - Death [Fatal]
  - COVID-19 [Unknown]
  - Immune system disorder [Unknown]

NARRATIVE: CASE EVENT DATE: 20221225
